FAERS Safety Report 9106564 (Version 4)
Quarter: 2013Q2

REPORT INFORMATION
  Report Type: Spontaneous
  Country: US (occurrence: US)
  Receive Date: 20130221
  Receipt Date: 20130417
  Transmission Date: 20140414
  Serious: Yes (Other)
  Sender: FDA-Public Use
  Company Number: US-JNJFOC-20130204240

PATIENT
  Age: 79 Year
  Sex: Male
  Weight: 83.92 kg

DRUGS (11)
  1. ZYTIGA [Suspect]
     Indication: PROSTATE CANCER METASTATIC
     Dosage: 250 MG X 4
     Route: 048
     Dates: start: 201201
  2. ALLOPURINOL [Concomitant]
     Indication: GOUT
     Route: 048
  3. METFORMIN [Concomitant]
     Indication: DIABETES MELLITUS
     Route: 048
  4. CALCIUM [Concomitant]
     Route: 048
  5. LYRICA [Concomitant]
     Indication: NEUROPATHY PERIPHERAL
     Route: 048
  6. PREDNISONE [Concomitant]
     Indication: PROSTATE CANCER
     Route: 048
     Dates: start: 20040512
  7. CENTURY SILVER MULTIVITAMINS [Concomitant]
     Route: 048
  8. LUPRON [Concomitant]
     Indication: PROSTATE CANCER
     Route: 065
     Dates: start: 20040512
  9. RITALIN [Concomitant]
     Indication: ENERGY INCREASED
     Route: 065
  10. LOSARTAN [Concomitant]
     Indication: BLOOD PRESSURE
     Route: 065
  11. PREVACID [Concomitant]
     Indication: GASTROOESOPHAGEAL REFLUX DISEASE
     Route: 065

REACTIONS (3)
  - Bone scan abnormal [Not Recovered/Not Resolved]
  - Neuropathy peripheral [Not Recovered/Not Resolved]
  - Prostatic specific antigen increased [Not Recovered/Not Resolved]
